FAERS Safety Report 15493950 (Version 4)
Quarter: 2019Q3

REPORT INFORMATION
  Report Type: Report from Study
  Country: US (occurrence: US)
  Receive Date: 20181012
  Receipt Date: 20190909
  Transmission Date: 20191004
  Serious: Yes (Other)
  Sender: FDA-Public Use
  Company Number: PHEH2018US043293

PATIENT
  Sex: Female

DRUGS (1)
  1. COSENTYX [Suspect]
     Active Substance: SECUKINUMAB
     Indication: PRODUCT USED FOR UNKNOWN INDICATION
     Route: 065

REACTIONS (6)
  - Psoriatic arthropathy [Unknown]
  - Skin lesion [Unknown]
  - Visual impairment [Unknown]
  - Hypoacusis [Unknown]
  - Limb discomfort [Unknown]
  - Gait inability [Unknown]
